FAERS Safety Report 4963820-0 (Version None)
Quarter: 2006Q1

REPORT INFORMATION
  Report Type: 
  Country: None (occurrence: None)
  Receive Date: 20060330
  Receipt Date: 20060318
  Transmission Date: 20060701
  Serious: Yes (Life-Threatening, Other)
  Sender: FDA-Public Use
  Company Number: 2006028563

PATIENT
  Age: 60 Year
  Sex: Female
  Weight: 76.6579 kg

DRUGS (9)
  1. ZITHROMAX [Suspect]
     Indication: SINUSITIS
     Dosage: 250 MG (250 MG, DAILY INTERVAL: EVERY DAY), ORAL
     Route: 048
     Dates: start: 20060223, end: 20060224
  2. ALL OTHER THERAPEUTIC PRODUCTS [Concomitant]
  3. SEREVENT [Concomitant]
  4. ALBUTEROL [Concomitant]
  5. CELEBREX [Concomitant]
  6. PREMARIN [Concomitant]
  7. SYNTHROID [Concomitant]
  8. ALLEGRA [Concomitant]
  9. LOTENSIN [Concomitant]

REACTIONS (6)
  - ANGIONEUROTIC OEDEMA [None]
  - DYSPHAGIA [None]
  - HYPERTENSION [None]
  - SOMNOLENCE [None]
  - SPEECH DISORDER [None]
  - TONGUE DISORDER [None]
